FAERS Safety Report 4497480-2 (Version None)
Quarter: 2004Q4

REPORT INFORMATION
  Report Type: 
  Country: None (occurrence: None)
  Receive Date: 20041110
  Receipt Date: 20041104
  Transmission Date: 20050328
  Serious: Yes (Other)
  Sender: FDA-Public Use
  Company Number: US-MERCK-0411USA00689

PATIENT
  Sex: Female

DRUGS (1)
  1. VIOXX [Suspect]
     Route: 048

REACTIONS (4)
  - BREAST DISORDER [None]
  - HAEMORRHAGE [None]
  - MUSCULOSKELETAL STIFFNESS [None]
  - PROTHROMBIN LEVEL INCREASED [None]
